FAERS Safety Report 10421866 (Version 1)
Quarter: 2014Q3

REPORT INFORMATION
  Report Type: Spontaneous
  Country: US (occurrence: US)
  Receive Date: 20140901
  Receipt Date: 20140901
  Transmission Date: 20150326
  Serious: Yes (Other)
  Sender: FDA-Public Use
  Company Number: US-ROCHE-1452251

PATIENT
  Age: 36 Week
  Sex: Male
  Weight: .49 kg

DRUGS (1)
  1. BEVACIZUMAB [Suspect]
     Active Substance: BEVACIZUMAB
     Indication: RETINOPATHY OF PREMATURITY
     Dosage: 0.625 MG BEVACIZUMAB IN 0.025 ML OF SOLUTION
     Route: 050

REACTIONS (2)
  - Off label use [Unknown]
  - Retinopathy of prematurity [Unknown]
